FAERS Safety Report 10259509 (Version 1)
Quarter: 2014Q2

REPORT INFORMATION
  Report Type: Spontaneous
  Country: GB (occurrence: GB)
  Receive Date: 20140625
  Receipt Date: 20140625
  Transmission Date: 20141212
  Serious: Yes (Other)
  Sender: FDA-Public Use
  Company Number: GB-PFIZER INC-2014169397

PATIENT
  Sex: Male

DRUGS (2)
  1. SUTENT [Suspect]
     Indication: NEOPLASM MALIGNANT
     Dosage: 37.5 MG, CYCLIC
  2. SUTENT [Suspect]
     Dosage: 50 MG, CYCLIC

REACTIONS (3)
  - Purpura [Unknown]
  - Disease progression [Unknown]
  - Neoplasm malignant [Unknown]
